FAERS Safety Report 25463380 (Version 1)
Quarter: 2025Q2

REPORT INFORMATION
  Report Type: Spontaneous
  Country: US (occurrence: US)
  Receive Date: 20250620
  Receipt Date: 20250620
  Transmission Date: 20250716
  Serious: No
  Sender: MILLICENT HOLDINGS
  Company Number: US-Millicent Holdings Ltd.-MILL20250255

PATIENT
  Sex: Female

DRUGS (3)
  1. INTRAROSA [Suspect]
     Active Substance: PRASTERONE
     Indication: Genitourinary syndrome of menopause
     Route: 067
  2. INTRAROSA [Suspect]
     Active Substance: PRASTERONE
     Indication: Atrophic vulvovaginitis
  3. ESTRADIOL TRANSDERMAL SYSTEM [Concomitant]
     Active Substance: ESTRADIOL
     Indication: Product used for unknown indication
     Route: 062

REACTIONS (1)
  - Off label use [Unknown]
